FAERS Safety Report 18009972 (Version 3)
Quarter: 2020Q4

REPORT INFORMATION
  Report Type: Report from Study
  Country: None (occurrence: US)
  Receive Date: 20200711
  Receipt Date: 20201109
  Transmission Date: 20210113
  Serious: Yes (Hospitalization, Other)
  Sender: FDA-Public Use
  Company Number: US-ABBVIE-20K-163-3439653-00

PATIENT
  Sex: Female

DRUGS (2)
  1. HUMIRA [Suspect]
     Active Substance: ADALIMUMAB
     Route: 058
     Dates: start: 20200703
  2. HUMIRA [Suspect]
     Active Substance: ADALIMUMAB
     Indication: RHEUMATOID ARTHRITIS
     Dosage: CITRATE FREE
     Route: 058
     Dates: start: 2018, end: 202005

REACTIONS (6)
  - Intervertebral disc protrusion [Recovering/Resolving]
  - Sepsis [Unknown]
  - Urinary tract infection [Unknown]
  - Intervertebral disc degeneration [Recovering/Resolving]
  - Haemorrhage [Recovering/Resolving]
  - Abdominal operation [Unknown]

NARRATIVE: CASE EVENT DATE: 2018
